FAERS Safety Report 12647434 (Version 13)
Quarter: 2019Q3

REPORT INFORMATION
  Report Type: Report from Study
  Country: CO (occurrence: CO)
  Receive Date: 20160812
  Receipt Date: 20190709
  Transmission Date: 20191004
  Serious: Yes (Death, Hospitalization, Other)
  Sender: FDA-Public Use
  Company Number: CO-INCYTE CORPORATION-2015IN005606

PATIENT

DRUGS (8)
  1. ACETAMINOPHEN. [Concomitant]
     Active Substance: ACETAMINOPHEN
     Indication: PRODUCT USED FOR UNKNOWN INDICATION
     Dosage: UNK
     Route: 065
  2. JAKAVI [Suspect]
     Active Substance: RUXOLITINIB
     Indication: MYELOFIBROSIS
     Dosage: 20 MG, QD
     Route: 048
     Dates: start: 20150910, end: 201606
  3. LORAZEPAM. [Concomitant]
     Active Substance: LORAZEPAM
     Indication: PRODUCT USED FOR UNKNOWN INDICATION
     Dosage: UNK
     Route: 065
  4. JAKAVI [Suspect]
     Active Substance: RUXOLITINIB
     Dosage: 40 MG, QD
     Route: 048
  5. VITAMINS NOS [Concomitant]
     Active Substance: VITAMINS
     Indication: PRODUCT USED FOR UNKNOWN INDICATION
     Dosage: UNK
     Route: 065
  6. HYDROXYUREA. [Concomitant]
     Active Substance: HYDROXYUREA
     Indication: PRODUCT USED FOR UNKNOWN INDICATION
     Dosage: UNK
     Route: 065
  7. OMEPRAZOLE. [Concomitant]
     Active Substance: OMEPRAZOLE
     Indication: PRODUCT USED FOR UNKNOWN INDICATION
     Dosage: UNK
     Route: 065
  8. ATORVASTATIN [Concomitant]
     Active Substance: ATORVASTATIN
     Indication: PRODUCT USED FOR UNKNOWN INDICATION
     Dosage: UNK
     Route: 065

REACTIONS (36)
  - Death [Fatal]
  - Thirst [Unknown]
  - Fall [Unknown]
  - Inappropriate schedule of product administration [Unknown]
  - Splenomegaly [Unknown]
  - Peripheral swelling [Unknown]
  - Haematochezia [Unknown]
  - Sleep disorder [Unknown]
  - Feeling of despair [Unknown]
  - Platelet count increased [Unknown]
  - Drug ineffective [Unknown]
  - Feeling abnormal [Unknown]
  - Gastritis [Unknown]
  - Asphyxia [Unknown]
  - Dizziness [Unknown]
  - General physical health deterioration [Unknown]
  - Spleen disorder [Unknown]
  - Pyrexia [Unknown]
  - Pain [Unknown]
  - White blood cell count decreased [Unknown]
  - Hepatic infection bacterial [Unknown]
  - Fatigue [Unknown]
  - Chest pain [Unknown]
  - Inflammation [Unknown]
  - Headache [Unknown]
  - Ingrowing nail [Recovered/Resolved]
  - Balance disorder [Unknown]
  - Palpitations [Unknown]
  - Eating disorder [Unknown]
  - Malaise [Unknown]
  - Decreased appetite [Unknown]
  - Weight decreased [Unknown]
  - Dyspnoea [Unknown]
  - Tinnitus [Unknown]
  - Hepatitis [Unknown]
  - Sensory loss [Unknown]

NARRATIVE: CASE EVENT DATE: 20151010
